FAERS Safety Report 12832559 (Version 2)
Quarter: 2016Q4

REPORT INFORMATION
  Report Type: Spontaneous
  Country: US (occurrence: US)
  Receive Date: 20161010
  Receipt Date: 20161018
  Transmission Date: 20170207
  Serious: No
  Sender: FDA-Public Use
  Company Number: US-BAYER-2016-187147

PATIENT
  Age: 48 Year
  Sex: Male

DRUGS (8)
  1. LEVITRA [Suspect]
     Active Substance: VARDENAFIL HYDROCHLORIDE TRIHYDRATE
     Indication: ERECTILE DYSFUNCTION
     Dosage: 20 MG, 1 TABLET, TWICE PER MONTH
     Route: 048
     Dates: start: 2011, end: 20160912
  2. METHADONE [Concomitant]
     Active Substance: METHADONE HYDROCHLORIDE
     Indication: HEMIANAESTHESIA
  3. GABAPENTIN. [Concomitant]
     Active Substance: GABAPENTIN
     Indication: NEURALGIA
     Dosage: 1500 MG, TID
  4. LYRICA [Concomitant]
     Active Substance: PREGABALIN
     Indication: HEMIANAESTHESIA
  5. LYRICA [Concomitant]
     Active Substance: PREGABALIN
     Indication: NEURALGIA
     Dosage: 75 MG, TID
  6. METHADONE [Concomitant]
     Active Substance: METHADONE HYDROCHLORIDE
     Indication: NEURALGIA
     Dosage: 5 MG, TID
  7. GABAPENTIN. [Concomitant]
     Active Substance: GABAPENTIN
     Indication: HEMIANAESTHESIA
  8. BACLOFEN. [Concomitant]
     Active Substance: BACLOFEN
     Indication: MUSCLE SPASTICITY
     Dosage: 10 MG, TID

REACTIONS (3)
  - Drug effect incomplete [Unknown]
  - Flushing [None]
  - Therapy partial responder [None]
